FAERS Safety Report 8181103-5 (Version None)
Quarter: 2012Q1

REPORT INFORMATION
  Report Type: 
  Country: None (occurrence: None)
  Receive Date: 20120301
  Receipt Date: 20120301
  Transmission Date: 20120608
  Serious: No
  Sender: FDA-Public Use
  Company Number: None

PATIENT
  Age: 73 Year
  Sex: Male
  Weight: 112.1 kg

DRUGS (1)
  1. CLOFARABINE 20MG/20ML GENGYME [Suspect]
     Indication: LEUKAEMIA
     Dosage: 94.8 MG ONCE 042
     Dates: start: 20120209

REACTIONS (1)
  - HYPOTENSION [None]
